FAERS Safety Report 9473766 (Version 1)
Quarter: 2013Q3

REPORT INFORMATION
  Report Type: Spontaneous
  Country: US (occurrence: US)
  Receive Date: 20130823
  Receipt Date: 20130823
  Transmission Date: 20140515
  Serious: No
  Sender: FDA-Public Use
  Company Number: US-BRISTOL-MYERS SQUIBB COMPANY-16970014

PATIENT
  Age: 45 Year
  Sex: Male

DRUGS (7)
  1. SPRYCEL (CML) TABS 100 MG [Suspect]
     Dates: start: 20120907
  2. ALLOPURINOL [Concomitant]
  3. ATENOLOL [Concomitant]
  4. PROCHLORPERAZINE [Concomitant]
     Dosage: PROCHLORPER
  5. TRAMADOL [Concomitant]
  6. TYLENOL [Concomitant]
  7. ZYRTEC [Concomitant]

REACTIONS (1)
  - Diarrhoea [Unknown]
